FAERS Safety Report 10781738 (Version 1)
Quarter: 2015Q1

REPORT INFORMATION
  Report Type: Spontaneous
  Country: US (occurrence: None)
  Receive Date: 20150209
  Receipt Date: 20150209
  Transmission Date: 20150721
  Serious: No
  Sender: FDA-Public Use
  Company Number: None

PATIENT
  Sex: Female

DRUGS (2)
  1. SOVALDI [Suspect]
     Active Substance: SOFOSBUVIR
     Indication: HEPATITIS C
     Route: 048
     Dates: start: 20141219
  2. RIBAVIRIN. [Suspect]
     Active Substance: RIBAVIRIN
     Indication: HEPATITIS C
     Route: 048
     Dates: start: 20141219

REACTIONS (7)
  - Dyspnoea [None]
  - Rhinorrhoea [None]
  - Pain [None]
  - Pruritus [None]
  - Cough [None]
  - Chills [None]
  - Pollakiuria [None]

NARRATIVE: CASE EVENT DATE: 20140101
